FAERS Safety Report 7881079-1 (Version None)
Quarter: 2011Q4

REPORT INFORMATION
  Report Type: 
  Country: None (occurrence: None)
  Receive Date: 20111101
  Receipt Date: 20110614
  Transmission Date: 20120403
  Serious: No
  Sender: FDA-Public Use
  Company Number: US-AMGEN-USASP2011028716

PATIENT
  Age: 5 Year
  Sex: Female
  Weight: 17.2 kg

DRUGS (2)
  1. ENBREL [Suspect]
     Indication: RHEUMATOID ARTHRITIS
     Dosage: 25 MG, 2 TIMES/WK
     Route: 058
     Dates: start: 20110311
  2. ENBREL [Suspect]
     Indication: JUVENILE ARTHRITIS

REACTIONS (3)
  - EXCORIATION [None]
  - WOUND INFECTION [None]
  - LACERATION [None]
